FAERS Safety Report 17604522 (Version 1)
Quarter: 2020Q1

REPORT INFORMATION
  Report Type: Spontaneous
  Country: US (occurrence: US)
  Receive Date: 20200331
  Receipt Date: 20200331
  Transmission Date: 20200409
  Serious: No
  Sender: FDA-Public Use
  Company Number: US-VERTEX PHARMACEUTICALS-2020-007110

PATIENT
  Sex: Female
  Weight: 53.06 kg

DRUGS (6)
  1. TRETINOIN. [Concomitant]
     Active Substance: TRETINOIN
     Dosage: UNK
  2. ALDACTONE [POTASSIUM CANRENOATE] [Concomitant]
     Active Substance: CANRENOATE POTASSIUM
     Dosage: UNK, BID
     Route: 048
  3. ALBUTEROL SULFATE. [Concomitant]
     Active Substance: ALBUTEROL SULFATE
     Dosage: UNK
  4. CLINDAMYCIN AND BENZOYL PEROXIDE [Concomitant]
     Active Substance: BENZOYL PEROXIDE\CLINDAMYCIN PHOSPHATE
     Dosage: UNK
  5. PANTOPRAZOLE SODIUM. [Concomitant]
     Active Substance: PANTOPRAZOLE SODIUM
     Dosage: UNK, QD
     Route: 048
  6. KALYDECO [Suspect]
     Active Substance: IVACAFTOR
     Indication: CYSTIC FIBROSIS
     Dosage: 150 MG, BID
     Route: 048

REACTIONS (1)
  - Cataract [Unknown]
